FAERS Safety Report 4727250-9 (Version None)
Quarter: 2005Q3

REPORT INFORMATION
  Report Type: 
  Country: None (occurrence: None)
  Receive Date: 20050728
  Receipt Date: 20050722
  Transmission Date: 20060218
  Serious: Yes (Death, Hospitalization)
  Sender: FDA-Public Use
  Company Number: US-GLAXOSMITHKLINE-A0567289A

PATIENT

DRUGS (1)
  1. ARIXTRA [Suspect]
     Dosage: 2.5MG UNKNOWN
     Route: 058

REACTIONS (1)
  - THROMBOSIS [None]
